FAERS Safety Report 5167515-2 (Version None)
Quarter: 2006Q4

REPORT INFORMATION
  Report Type: 
  Country: None (occurrence: None)
  Receive Date: 20060830
  Receipt Date: 20060421
  Transmission Date: 20070319
  Serious: No
  Sender: FDA-Public Use
  Company Number: 223690

PATIENT
  Age: 54 Year
  Sex: Female

DRUGS (16)
  1. XOLAIR [Suspect]
     Indication: ASTHMA
     Dosage: 375 MG, Q2W
     Dates: start: 20051220
  2. THEOPHYLLINE [Concomitant]
  3. Q-VEL (QUININE SULFATE, VITAMIN E) [Concomitant]
  4. FORADIL [Concomitant]
  5. NASONEX (MOMETASONE FUORATE) [Concomitant]
  6. ALLEGRA [Concomitant]
  7. SINGULAIR [Concomitant]
  8. ALBUTEROL (ALBUTEROL/ALBUTEROL SULFATE) [Concomitant]
  9. ALPRAZOLAM [Concomitant]
  10. PROTONIX [Concomitant]
  11. DIOVAN [Concomitant]
  12. LYRICA [Concomitant]
  13. MIRTAZAPINE [Concomitant]
  14. NYSTATIN [Concomitant]
  15. CALCIUM (CALCIUM NOS) [Concomitant]
  16. MVI (MULTIVITAMINS NOS) [Concomitant]

REACTIONS (2)
  - ARTHRALGIA [None]
  - MYALGIA [None]
